FAERS Safety Report 5379489-X (Version None)
Quarter: 2007Q3

REPORT INFORMATION
  Report Type: 
  Country: None (occurrence: None)
  Receive Date: 20070703
  Receipt Date: 20070625
  Transmission Date: 20080115
  Serious: Yes (Hospitalization)
  Sender: FDA-Public Use
  Company Number: 2007BI013639

PATIENT
  Sex: Female

DRUGS (1)
  1. AVONEX [Suspect]
     Indication: MULTIPLE SCLEROSIS
     Dosage: 30 UG;Q W; IM
     Route: 030
     Dates: start: 20021204

REACTIONS (2)
  - MULTIPLE SCLEROSIS RELAPSE [None]
  - OESOPHAGEAL STENOSIS [None]
